FAERS Safety Report 18322342 (Version 27)
Quarter: 2023Q1

REPORT INFORMATION
  Report Type: Report from Study
  Country: GB (occurrence: GB)
  Receive Date: 20200928
  Receipt Date: 20230314
  Transmission Date: 20230418
  Serious: Yes (Hospitalization, Other)
  Sender: FDA-Public Use
  Company Number: GB-ROCHE-2225270

PATIENT
  Age: 43 Year
  Sex: Female

DRUGS (136)
  1. TRASTUZUMAB [Suspect]
     Active Substance: TRASTUZUMAB
     Indication: HER2 positive breast cancer
     Dosage: 8 MILLIGRAM, Q3W
     Route: 042
     Dates: start: 20171108
  2. TRASTUZUMAB [Suspect]
     Active Substance: TRASTUZUMAB
     Indication: Breast cancer metastatic
     Dosage: 8 MILLIGRAM, Q3W
     Route: 042
     Dates: start: 20171108
  3. TRASTUZUMAB [Suspect]
     Active Substance: TRASTUZUMAB
     Indication: Cancer pain
     Dosage: 882 MILLIGRAM
     Route: 042
     Dates: start: 20171108, end: 20171129
  4. TRASTUZUMAB [Suspect]
     Active Substance: TRASTUZUMAB
     Dosage: 8 MILLIGRAM, Q3W
     Route: 042
     Dates: start: 20171129
  5. TRASTUZUMAB [Suspect]
     Active Substance: TRASTUZUMAB
     Dosage: 651 MILLIGRAM, Q3W
     Route: 042
     Dates: start: 20171129, end: 20210903
  6. TRASTUZUMAB [Suspect]
     Active Substance: TRASTUZUMAB
     Dosage: 8 MILLIGRAM, Q3W
     Route: 042
     Dates: start: 20211015
  7. TRASTUZUMAB [Suspect]
     Active Substance: TRASTUZUMAB
     Dosage: 600 MILLIGRAM, Q3W
     Route: 058
     Dates: start: 20211015
  8. TRASTUZUMAB [Suspect]
     Active Substance: TRASTUZUMAB
     Dosage: UNK
     Route: 065
  9. TRASTUZUMAB [Suspect]
     Active Substance: TRASTUZUMAB
     Dosage: 8 MILLIGRAM, Q3W
     Route: 042
     Dates: start: 20171108
  10. TRASTUZUMAB [Suspect]
     Active Substance: TRASTUZUMAB
     Dosage: 8 MILLIGRAM, Q3W
     Route: 042
     Dates: start: 20171108
  11. DOCETAXEL [Suspect]
     Active Substance: DOCETAXEL
     Indication: HER2 positive breast cancer
     Dosage: 148 MILLIGRAM, Q3W
     Route: 042
     Dates: start: 20171108, end: 20180131
  12. DOCETAXEL [Suspect]
     Active Substance: DOCETAXEL
     Indication: Cancer pain
     Dosage: 148 MILLIGRAM, Q3W
     Route: 042
     Dates: start: 20171108, end: 20180131
  13. DOCETAXEL [Suspect]
     Active Substance: DOCETAXEL
     Indication: Breast cancer metastatic
     Dosage: 592 MILLIGRAM
     Route: 042
  14. DOCETAXEL [Suspect]
     Active Substance: DOCETAXEL
     Dosage: 592 MILLIGRAM
     Route: 065
  15. DOCETAXEL [Suspect]
     Active Substance: DOCETAXEL
     Dosage: UNK
     Route: 065
  16. DOCETAXEL [Suspect]
     Active Substance: DOCETAXEL
     Dosage: 592 MILLIGRAM
     Route: 065
  17. DOCETAXEL [Suspect]
     Active Substance: DOCETAXEL
     Dosage: 592 MILLIGRAM
     Route: 042
  18. PERTUZUMAB [Suspect]
     Active Substance: PERTUZUMAB
     Indication: Breast cancer metastatic
     Dosage: 840 MILLIGRAM, Q3W
     Route: 042
     Dates: start: 20171108
  19. PERTUZUMAB [Suspect]
     Active Substance: PERTUZUMAB
     Indication: HER2 positive breast cancer
     Dosage: 420 MILLIGRAM, Q3W
     Route: 042
     Dates: start: 20171129, end: 20210924
  20. PERTUZUMAB [Suspect]
     Active Substance: PERTUZUMAB
     Indication: Cancer pain
     Dosage: 840 MILLIGRAM, Q3W
     Route: 042
     Dates: start: 20181120
  21. PERTUZUMAB [Suspect]
     Active Substance: PERTUZUMAB
     Dosage: UNK
     Route: 065
  22. PERTUZUMAB [Suspect]
     Active Substance: PERTUZUMAB
     Dosage: 840 MILLIGRAM, Q3W
     Route: 042
     Dates: start: 20181120
  23. PERTUZUMAB [Suspect]
     Active Substance: PERTUZUMAB
     Dosage: UNK
     Route: 065
  24. PERTUZUMAB [Suspect]
     Active Substance: PERTUZUMAB
     Dosage: 600 MILLIGRAM, Q3W
     Route: 058
     Dates: start: 20211015
  25. PERTUZUMAB [Suspect]
     Active Substance: PERTUZUMAB
     Dosage: 840 MILLIGRAM, Q3W
     Route: 042
     Dates: start: 20171108, end: 20171129
  26. PERTUZUMAB [Suspect]
     Active Substance: PERTUZUMAB
     Dosage: 420 MILLIGRAM
     Route: 042
     Dates: start: 20171129
  27. PERTUZUMAB [Suspect]
     Active Substance: PERTUZUMAB
     Dosage: 420 MILLIGRAM, Q3W
     Route: 042
     Dates: start: 20171129
  28. PERTUZUMAB [Suspect]
     Active Substance: PERTUZUMAB
     Dosage: UNK(230)
     Route: 065
  29. HYALURONIDASE (HUMAN RECOMBINANT) [Suspect]
     Active Substance: HYALURONIDASE (HUMAN RECOMBINANT)
     Indication: Breast cancer metastatic
     Dosage: 600 MILLIGRAM, Q3W
     Route: 058
     Dates: start: 20211015
  30. SIMVASTATIN [Concomitant]
     Active Substance: SIMVASTATIN
     Indication: Cancer pain
     Dosage: UNK
     Route: 065
  31. SIMVASTATIN [Concomitant]
     Active Substance: SIMVASTATIN
     Dosage: 40 MILLIGRAM, QD
     Route: 048
  32. RAMIPRIL [Concomitant]
     Active Substance: RAMIPRIL
     Indication: Cancer pain
     Dosage: UNK
     Route: 065
  33. RAMIPRIL [Concomitant]
     Active Substance: RAMIPRIL
     Dosage: 1.25 MILLIGRAM, QD
     Route: 048
  34. ONDANSETRON [Concomitant]
     Active Substance: ONDANSETRON
     Indication: Diarrhoea
     Dosage: 4 MILLIGRAM
     Route: 042
     Dates: start: 20181002, end: 20181002
  35. ONDANSETRON [Concomitant]
     Active Substance: ONDANSETRON
     Indication: Vomiting
     Dosage: 4 MILLIGRAM
     Route: 065
     Dates: start: 20181002, end: 20181102
  36. ONDANSETRON [Concomitant]
     Active Substance: ONDANSETRON
     Dosage: 4 MILLIGRAM
     Route: 065
     Dates: start: 20181002, end: 20181002
  37. ONDANSETRON [Concomitant]
     Active Substance: ONDANSETRON
     Dosage: 4 MILLIGRAM
     Route: 042
     Dates: start: 20181001, end: 20181002
  38. ONDANSETRON [Concomitant]
     Active Substance: ONDANSETRON
     Dosage: 40 MILLIGRAM, QD
     Route: 048
     Dates: start: 201710
  39. METFORMIN [Concomitant]
     Active Substance: METFORMIN HYDROCHLORIDE
     Indication: Cancer pain
     Dosage: 500 MILLIGRAM, QD
     Route: 048
  40. METFORMIN [Concomitant]
     Active Substance: METFORMIN HYDROCHLORIDE
     Dosage: 1000 MILLIGRAM, QD
     Route: 048
  41. METFORMIN [Concomitant]
     Active Substance: METFORMIN HYDROCHLORIDE
     Dosage: 500 MILLIGRAM, QD
     Route: 048
  42. METFORMIN [Concomitant]
     Active Substance: METFORMIN HYDROCHLORIDE
     Dosage: 5 MILLIGRAM
     Route: 065
     Dates: end: 20181002
  43. MIRTAZAPINE [Concomitant]
     Active Substance: MIRTAZAPINE
     Indication: Cancer pain
     Dosage: 45 MILLIGRAM, QD
     Route: 048
  44. LINEZOLID [Concomitant]
     Active Substance: LINEZOLID
     Indication: Device related infection
     Dosage: 600 MILLIGRAM, BID
     Route: 048
     Dates: start: 20191125, end: 20191130
  45. LINEZOLID [Concomitant]
     Active Substance: LINEZOLID
     Indication: Vascular device infection
     Dosage: UNK
     Route: 065
  46. LINEZOLID [Concomitant]
     Active Substance: LINEZOLID
     Indication: Cancer pain
     Dosage: 600 MILLIGRAM
     Route: 048
     Dates: start: 20191125, end: 20191130
  47. LINEZOLID [Concomitant]
     Active Substance: LINEZOLID
     Dosage: UNK
     Route: 065
  48. ALBUTEROL [Concomitant]
     Active Substance: ALBUTEROL
     Indication: Cancer pain
     Dosage: 2 PUFF
     Route: 055
  49. ALBUTEROL [Concomitant]
     Active Substance: ALBUTEROL
     Dosage: 2 PUFF, PRN
     Route: 055
  50. ALBUTEROL [Concomitant]
     Active Substance: ALBUTEROL
     Dosage: 2 DOSE PUFF
     Route: 055
  51. ALBUTEROL [Concomitant]
     Active Substance: ALBUTEROL
     Dosage: UNK, PRN(PRN (DOSE 2 PUFF)
     Route: 055
  52. SODIUM PICOSULFATE [Concomitant]
     Active Substance: SODIUM PICOSULFATE
     Indication: Constipation
     Dosage: 10 MILLIGRAM, QD
     Route: 048
  53. SODIUM PICOSULFATE [Concomitant]
     Active Substance: SODIUM PICOSULFATE
     Indication: Cancer pain
     Dosage: 10 MILLIGRAM, QD (10 MG IN 10 ML)
     Route: 048
  54. SODIUM PICOSULFATE [Concomitant]
     Active Substance: SODIUM PICOSULFATE
     Dosage: UNK (QD)
     Route: 048
  55. SODIUM PICOSULFATE [Concomitant]
     Active Substance: SODIUM PICOSULFATE
     Dosage: 10 MILLIGRAM, QD
     Route: 048
  56. SODIUM PICOSULFATE [Concomitant]
     Active Substance: SODIUM PICOSULFATE
     Dosage: 10 OTHER (10 MG IN 10 ML) PAIN FROM METASTASES)
     Route: 048
  57. QUETIAPINE [Concomitant]
     Active Substance: QUETIAPINE
     Indication: Depressed mood
     Dosage: 100 MILLIGRAM, QD
     Route: 048
  58. QUETIAPINE [Concomitant]
     Active Substance: QUETIAPINE
     Dosage: 150 MILLIGRAM, QD
     Route: 048
     Dates: start: 2020
  59. QUETIAPINE [Concomitant]
     Active Substance: QUETIAPINE
     Dosage: UNK (QD)
     Route: 048
     Dates: start: 2020
  60. QUETIAPINE [Concomitant]
     Active Substance: QUETIAPINE
     Dosage: 100 MILLIGRAM, QD
     Route: 048
     Dates: start: 2020
  61. QUETIAPINE [Concomitant]
     Active Substance: QUETIAPINE
     Dosage: 100 MILLIGRAM, QD
     Route: 048
     Dates: end: 2020
  62. QUETIAPINE [Concomitant]
     Active Substance: QUETIAPINE
     Dosage: 150 MILLIGRAM, QD
     Route: 048
     Dates: end: 2020
  63. QUETIAPINE [Concomitant]
     Active Substance: QUETIAPINE
     Dosage: UNK, QD
     Route: 048
     Dates: start: 2020
  64. QUETIAPINE [Concomitant]
     Active Substance: QUETIAPINE
     Dosage: PAIN FROM METASTASES
     Route: 048
     Dates: start: 2020
  65. OXYCODONE [Concomitant]
     Active Substance: OXYCODONE
     Indication: Cancer pain
     Dosage: 110 MILLIGRAM, BID
     Route: 048
  66. OXYCODONE [Concomitant]
     Active Substance: OXYCODONE
     Indication: Pain
     Dosage: 110 MILLIGRAM, BID
     Route: 048
  67. OXYCODONE [Concomitant]
     Active Substance: OXYCODONE
     Dosage: 220 MILLIGRAM, QD
     Route: 048
  68. OXYCODONE [Concomitant]
     Active Substance: OXYCODONE
     Dosage: 110 MILLIGRAM, BID
     Route: 048
  69. OXYCODONE [Concomitant]
     Active Substance: OXYCODONE
     Dosage: UNK(2 OT, QD )
     Route: 065
  70. OXYCODONE [Concomitant]
     Active Substance: OXYCODONE
     Dosage: UNK(PUFF, BID)
     Route: 065
  71. OXYCODONE [Concomitant]
     Active Substance: OXYCODONE
     Dosage: 110 MILLIGRAM
     Route: 048
  72. OXYCODONE [Concomitant]
     Active Substance: OXYCODONE
     Dosage: 220 MILLIGRAM (110 MG, BID 0.5 PER DAY)
     Route: 048
  73. OXYCODONE [Concomitant]
     Active Substance: OXYCODONE
     Dosage: 110 MILLIGRAM, BID
     Route: 048
  74. OXYCODONE [Concomitant]
     Active Substance: OXYCODONE
     Dosage: 220 MILLIGRAM, QD
     Route: 048
  75. OXYCODONE [Concomitant]
     Active Substance: OXYCODONE
     Dosage: 220 MILLIGRAM
     Route: 048
  76. OXYCODONE [Concomitant]
     Active Substance: OXYCODONE
     Dosage: 110 MILLIGRAM, BID
     Route: 048
  77. LACTULOSE [Concomitant]
     Active Substance: LACTULOSE
     Indication: Constipation
     Dosage: 10 MILLILITER, BID
     Route: 048
  78. LACTULOSE [Concomitant]
     Active Substance: LACTULOSE
     Indication: Prophylaxis
     Dosage: 20 MILLILITER
     Route: 048
  79. LACTULOSE [Concomitant]
     Active Substance: LACTULOSE
     Dosage: 10 MILLILITER, BID
     Route: 048
  80. LACTULOSE [Concomitant]
     Active Substance: LACTULOSE
     Dosage: 10 MILLILITER
     Route: 048
  81. LACTULOSE [Concomitant]
     Active Substance: LACTULOSE
     Dosage: 20 MILLILITER(10 MILLILITER, BID)
     Route: 048
  82. LACTULOSE [Concomitant]
     Active Substance: LACTULOSE
     Dosage: 20 MILLILITER (10 ML, BID OR 0.5 DAY)
     Route: 048
  83. LACTULOSE [Concomitant]
     Active Substance: LACTULOSE
     Dosage: 10 MILLILITER
     Route: 065
  84. OMEPRAZOLE [Concomitant]
     Active Substance: OMEPRAZOLE
     Indication: Cancer pain
     Dosage: 40 MILLIGRAM, QD (START DATE: OCT-2017)
     Route: 048
  85. BECLOMETHASONE DIPROPIONATE [Concomitant]
     Active Substance: BECLOMETHASONE DIPROPIONATE
     Indication: Cancer pain
     Dosage: 2 PUFF, BID (0.5 DAY)
     Route: 055
  86. BECLOMETHASONE DIPROPIONATE [Concomitant]
     Active Substance: BECLOMETHASONE DIPROPIONATE
     Dosage: UNK(2 OT, QD (DOSE 2 PUFF))
     Route: 055
  87. BECLOMETHASONE DIPROPIONATE [Concomitant]
     Active Substance: BECLOMETHASONE DIPROPIONATE
     Dosage: UNK(DOSE 2 PUFF, 0.5 DAY)
     Route: 055
  88. BECLOMETHASONE DIPROPIONATE [Concomitant]
     Active Substance: BECLOMETHASONE DIPROPIONATE
     Dosage: 2 PUFF, BID PAIN FROM METASTASES
     Route: 055
  89. CALCIUM CARBONATE [Concomitant]
     Active Substance: CALCIUM CARBONATE
     Indication: Product used for unknown indication
     Dosage: 1 DOSAGE FORM, BID
     Route: 048
  90. CALCIUM CARBONATE [Concomitant]
     Active Substance: CALCIUM CARBONATE
     Dosage: 1 DOSAGE FORM, QD
     Route: 048
  91. CALCIUM CARBONATE [Concomitant]
     Active Substance: CALCIUM CARBONATE
     Dosage: 1 DOSAGE FORM (0.5)
     Route: 065
  92. CALCIUM CARBONATE [Concomitant]
     Active Substance: CALCIUM CARBONATE
     Dosage: 1 DOSAGE FORM, BID
     Route: 065
  93. CALCIUM CARBONATE [Concomitant]
     Active Substance: CALCIUM CARBONATE
     Dosage: 2 DOSAGE FORM(1 DOSAGE FORM, BID)
     Route: 048
  94. CALCIUM CARBONATE [Concomitant]
     Active Substance: CALCIUM CARBONATE
     Dosage: 1 DOSAGE FORM, QD
     Route: 065
  95. CALCIUM CARBONATE [Concomitant]
     Active Substance: CALCIUM CARBONATE
     Dosage: 1 DOSAGE FORM(1 DF 0.5)
     Route: 048
  96. CLONAZEPAM [Concomitant]
     Active Substance: CLONAZEPAM
     Indication: Muscle spasms
     Dosage: 250 MILLIGRAM, QD (START DATE: 2020 )
     Route: 048
  97. CLONAZEPAM [Concomitant]
     Active Substance: CLONAZEPAM
     Indication: Abdominal rigidity
  98. MORPHINE [Concomitant]
     Active Substance: MORPHINE
     Indication: Cancer pain
     Dosage: 5 MILLIGRAM
     Route: 065
     Dates: start: 20181002, end: 20181002
  99. MORPHINE [Concomitant]
     Active Substance: MORPHINE
     Indication: Diarrhoea
     Dosage: 5 MILLIGRAM (START DATE: 02-OCT-2018)
     Route: 065
     Dates: end: 20181002
  100. MORPHINE [Concomitant]
     Active Substance: MORPHINE
     Indication: Vomiting
  101. NITROFURANTOIN [Concomitant]
     Active Substance: NITROFURANTOIN
     Indication: Urinary tract infection
     Dosage: 50 MILLIGRAM, QID(50 MG,0.25) (START DATE; 03-NOV-2018 )
     Route: 048
     Dates: end: 20181109
  102. NITROFURANTOIN [Concomitant]
     Active Substance: NITROFURANTOIN
     Indication: Cancer pain
     Dosage: 200 MILLIGRAM, QD
     Route: 048
     Dates: start: 20181103, end: 20181109
  103. NITROFURANTOIN [Concomitant]
     Active Substance: NITROFURANTOIN
     Dosage: 50 MILLIGRAM
     Route: 048
     Dates: start: 20181103, end: 20181109
  104. NITROFURANTOIN [Concomitant]
     Active Substance: NITROFURANTOIN
     Dosage: 200 MILLIGRAM(50 MG)
     Route: 048
     Dates: start: 20181103, end: 20181109
  105. NITROFURANTOIN [Concomitant]
     Active Substance: NITROFURANTOIN
     Dosage: 200 MILLIGRAM(50 MILLIGRAM, CUMULATIVE DOSE: 6608.333 MG)
     Route: 048
     Dates: start: 20181103, end: 20181109
  106. NITROFURANTOIN [Concomitant]
     Active Substance: NITROFURANTOIN
     Dosage: 50 MILLIGRAM(50 MG,0.25)
     Route: 048
     Dates: start: 20181103, end: 20181109
  107. NITROFURANTOIN [Concomitant]
     Active Substance: NITROFURANTOIN
     Dosage: 50 MILLIGRAM(50 MG, 0.25 PER DAY)
     Route: 048
     Dates: start: 20181103, end: 20181109
  108. NITROFURANTOIN [Concomitant]
     Active Substance: NITROFURANTOIN
     Dosage: 200 MILLIGRAM(CUMULATIVE DOSE: 1400 MG)
     Route: 048
     Dates: start: 20181103, end: 20181109
  109. CHOLECALCIFEROL [Concomitant]
     Active Substance: CHOLECALCIFEROL
     Indication: Cancer pain
     Dosage: 1 DOSAGE FORM, BID (1 DF,0.5)
     Route: 048
  110. CHOLECALCIFEROL [Concomitant]
     Active Substance: CHOLECALCIFEROL
     Dosage: 1 DOSAGE FORM(1 DF,0.5)
     Route: 048
  111. CALCIUM\VITAMIN D [Concomitant]
     Active Substance: CALCIUM\VITAMIN D
     Dosage: 2 DOSAGE FORM (2 DF, 1/DAY)
     Route: 048
  112. CALCIUM\VITAMIN D [Concomitant]
     Active Substance: CALCIUM\VITAMIN D
     Dosage: 1 DOSAGE FORM (F, PER 0.5 DAY)
     Route: 048
  113. BECLOMETHASONE DIPROPIONATE [Concomitant]
     Active Substance: BECLOMETHASONE DIPROPIONATE
     Indication: Cancer pain
     Dosage: DOSE 2 PUFF (0.5 DAY)
     Route: 055
  114. BECLOMETHASONE DIPROPIONATE [Concomitant]
     Active Substance: BECLOMETHASONE DIPROPIONATE
     Dosage: DOSE 2 PUFF
     Route: 055
  115. BECLOMETHASONE DIPROPIONATE [Concomitant]
     Active Substance: BECLOMETHASONE DIPROPIONATE
     Dosage: 2 PUFF, BID
     Route: 055
  116. BECLOMETHASONE DIPROPIONATE [Concomitant]
     Active Substance: BECLOMETHASONE DIPROPIONATE
     Dosage: 2 OT, QD (DOSE 2 PUFF)
     Route: 055
  117. BECLOMETHASONE DIPROPIONATE [Concomitant]
     Active Substance: BECLOMETHASONE DIPROPIONATE
     Dosage: 2 OT, QD (DOSE 2 PUFF)
     Route: 055
  118. BECLOMETHASONE DIPROPIONATE [Concomitant]
     Active Substance: BECLOMETHASONE DIPROPIONATE
     Dosage: 2 PUFF, BID
     Route: 055
  119. BECLOMETHASONE DIPROPIONATE [Concomitant]
     Active Substance: BECLOMETHASONE DIPROPIONATE
     Dosage: 2 OT, QD (DOSE 2 PUFF)
     Route: 055
  120. BECLOMETHASONE DIPROPIONATE [Concomitant]
     Active Substance: BECLOMETHASONE DIPROPIONATE
     Dosage: 2 PUFF, BID
     Route: 055
  121. BECLOMETHASONE DIPROPIONATE [Concomitant]
     Active Substance: BECLOMETHASONE DIPROPIONATE
     Dosage: 2 DOSAGE FORM, QD PUFF, BID
     Route: 055
  122. BECLOMETHASONE DIPROPIONATE [Concomitant]
     Active Substance: BECLOMETHASONE DIPROPIONATE
     Dosage: UNK(2 PUFF)
     Route: 055
  123. BECLOMETHASONE DIPROPIONATE [Concomitant]
     Active Substance: BECLOMETHASONE DIPROPIONATE
     Dosage: UNK(0.5 DAY PUFF)
     Route: 055
  124. BECLOMETHASONE DIPROPIONATE [Concomitant]
     Active Substance: BECLOMETHASONE DIPROPIONATE
     Dosage: UNK, QD(2 OT QD)
     Route: 065
  125. BECLOMETHASONE DIPROPIONATE [Concomitant]
     Active Substance: BECLOMETHASONE DIPROPIONATE
     Dosage: 4 DOSAGE FORM, BID
     Route: 065
  126. BECLOMETHASONE DIPROPIONATE [Concomitant]
     Active Substance: BECLOMETHASONE DIPROPIONATE
     Dosage: UNK, BID(2 PUFF BID)
     Route: 065
  127. ERYTHROMYCIN [Concomitant]
     Active Substance: ERYTHROMYCIN
     Indication: Vascular device infection
     Dosage: 500 MILLIGRAM, QID (START DATE: 2020 )
     Route: 048
     Dates: end: 202007
  128. QUETIAPINE [Concomitant]
     Active Substance: QUETIAPINE
     Indication: Depressed mood
     Dosage: 150 MILLIGRAM, QD
     Route: 048
     Dates: start: 2020
  129. QUETIAPINE [Concomitant]
     Active Substance: QUETIAPINE
     Indication: Cancer pain
     Dosage: 100 MILLIGRAM, QD
     Route: 048
     Dates: start: 2020
  130. QUETIAPINE [Concomitant]
     Active Substance: QUETIAPINE
     Dosage: 100 MILLIGRAM, QD, 2020
     Route: 048
  131. QUETIAPINE [Concomitant]
     Active Substance: QUETIAPINE
     Dosage: UNK (QD)
     Route: 048
     Dates: start: 2020
  132. VANCOMYCIN [Concomitant]
     Active Substance: VANCOMYCIN
     Indication: Vascular device infection
     Dosage: 1750 MILLIGRAM, BID (START DATE: 12-JUN-2020)
     Route: 042
     Dates: end: 202007
  133. CALCIUM CARBONATE\CHOLECALCIFEROL [Concomitant]
     Active Substance: CALCIUM CARBONATE\CHOLECALCIFEROL
     Indication: Cancer pain
     Dosage: 2 DOSAGE FORM, QD
     Route: 048
  134. CALCIUM CARBONATE\CHOLECALCIFEROL [Concomitant]
     Active Substance: CALCIUM CARBONATE\CHOLECALCIFEROL
     Dosage: 1 DOSAGE FORM, BID
     Route: 048
  135. CALCIUM CARBONATE\CHOLECALCIFEROL [Concomitant]
     Active Substance: CALCIUM CARBONATE\CHOLECALCIFEROL
     Dosage: 1 DOSAGE FORM(0.5 DAY)
     Route: 048
  136. CALCIUM CARBONATE\CHOLECALCIFEROL [Concomitant]
     Active Substance: CALCIUM CARBONATE\CHOLECALCIFEROL
     Dosage: 2 DOSAGE FORM (1 DOSAGE FORM, BID)
     Route: 048

REACTIONS (18)
  - Vascular device infection [Recovered/Resolved]
  - Device related infection [Recovered/Resolved]
  - Headache [Recovered/Resolved]
  - Diarrhoea [Recovered/Resolved]
  - Vomiting [Recovered/Resolved]
  - Dizziness [Recovered/Resolved]
  - Urinary tract infection [Recovered/Resolved]
  - Nausea [Recovered/Resolved]
  - Abdominal pain [Recovered/Resolved]
  - Back pain [Recovered/Resolved with Sequelae]
  - Diarrhoea [Recovered/Resolved]
  - Muscle spasms [Recovered/Resolved with Sequelae]
  - Appendicitis [Recovered/Resolved]
  - Abdominal rigidity [Recovered/Resolved with Sequelae]
  - COVID-19 [Recovered/Resolved]
  - Asthma [Recovered/Resolved with Sequelae]
  - Influenza [Recovered/Resolved]
  - Off label use [Unknown]

NARRATIVE: CASE EVENT DATE: 20180904
